FAERS Safety Report 8412016-9 (Version None)
Quarter: 2012Q2

REPORT INFORMATION
  Report Type: 
  Country: None (occurrence: None)
  Receive Date: 20120605
  Receipt Date: 20120531
  Transmission Date: 20120825
  Serious: Yes (Death, Hospitalization, Other)
  Sender: FDA-Public Use
  Company Number: GB-PFIZER INC-2009280394

PATIENT
  Age: 71 Year
  Sex: Female

DRUGS (8)
  1. LANSOPRAZOLE [Suspect]
     Dosage: 30 MG, 2X/DAY
     Route: 048
  2. THEOPHYLLINE [Suspect]
     Dosage: 200 MG, 2X/DAY
  3. ASPIRIN [Suspect]
     Dosage: 1 G, 4X/DAY
  4. METFORMIN HCL [Suspect]
     Dosage: 500 MG, 1X/DAY
  5. CAPECITABINE [Suspect]
     Indication: GASTRIC CANCER
     Dosage: UNK
     Route: 048
  6. ETHAMSYLATE [Suspect]
     Indication: GASTROINTESTINAL HAEMORRHAGE
     Dosage: 500 MG, 4X/DAY
  7. TRANEXAMIC ACID [Suspect]
     Indication: GASTROINTESTINAL HAEMORRHAGE
     Dosage: 1 G, 3X/DAY
     Route: 048
  8. ACETAMINOPHEN [Suspect]
     Dosage: 1 G, 4X/DAY

REACTIONS (6)
  - DEATH [None]
  - MELAENA [None]
  - SEPSIS [None]
  - ANAEMIA [None]
  - RECTAL HAEMORRHAGE [None]
  - NEOPLASM MALIGNANT [None]
